FAERS Safety Report 5395088-8 (Version None)
Quarter: 2007Q3

REPORT INFORMATION
  Report Type: 
  Country: None (occurrence: None)
  Receive Date: 20070724
  Receipt Date: 20070713
  Transmission Date: 20080115
  Serious: Yes (Hospitalization)
  Sender: FDA-Public Use
  Company Number: NZ-NOVOPROD-265493

PATIENT
  Sex: Male

DRUGS (2)
  1. PROTAPHANE PENFILL [Suspect]
     Indication: DIABETES MELLITUS
  2. PENMIX 30 PENFILL [Concomitant]
     Dates: start: 20070101

REACTIONS (3)
  - FLUID RETENTION [None]
  - HYPOGLYCAEMIA [None]
  - LOCAL SWELLING [None]
